FAERS Safety Report 6765288-0 (Version None)
Quarter: 2010Q2

REPORT INFORMATION
  Report Type: 
  Country: None (occurrence: None)
  Receive Date: 20100611
  Receipt Date: 20100519
  Transmission Date: 20101027
  Serious: No
  Sender: FDA-Public Use
  Company Number: US-BAYER-201022982NA

PATIENT
  Age: 36 Year
  Sex: Female

DRUGS (1)
  1. MIRENA [Suspect]
     Indication: CONTRACEPTION
     Dosage: MIRENA SHOULD BE REMOVED ON MAR-2009, BUT IT WAS NOT REMOVED
     Route: 015
     Dates: start: 20040301

REACTIONS (4)
  - ANTEPARTUM HAEMORRHAGE [None]
  - BREAST PAIN [None]
  - DEVICE DISLOCATION [None]
  - PREGNANCY [None]
